FAERS Safety Report 8736904 (Version 2)
Quarter: 2012Q4

REPORT INFORMATION
  Report Type: Report from Study
  Country: US (occurrence: None)
  Receive Date: 20120805
  Receipt Date: 20120814
  Transmission Date: 20130627
  Serious: Yes (Other)
  Sender: FDA-Public Use
  Company Number: AUR-APL-2012-03252

PATIENT
  Age: 50 Year
  Sex: Female
  Weight: 79.36 kg

DRUGS (2)
  1. VENLAFAXINE [Suspect]
     Indication: DEPRESSION
     Dosage: DAILY (150 MG), UNKNOWN
  2. EFFEXOR XR [Suspect]
     Indication: DEPRESSION
     Dosage: DAILY (150 MG), ORAL
     Route: 048
     Dates: start: 2012, end: 2012

REACTIONS (8)
  - Laryngitis [None]
  - Malaise [None]
  - Calcinosis [None]
  - Thyroid disorder [None]
  - Vomiting [None]
  - Treatment noncompliance [None]
  - Drug administration error [None]
  - Thyroid cancer [None]
